FAERS Safety Report 4939038-4 (Version None)
Quarter: 2006Q1

REPORT INFORMATION
  Report Type: 
  Country: None (occurrence: None)
  Receive Date: 20060309
  Receipt Date: 20051229
  Transmission Date: 20060701
  Serious: Yes (Hospitalization, Disabling)
  Sender: FDA-Public Use
  Company Number: US-MERCK-0512USA04088

PATIENT
  Age: 47 Year
  Sex: Female
  Weight: 81 kg

DRUGS (2)
  1. VIOXX [Suspect]
     Route: 048
  2. ALTACE [Suspect]
     Route: 065

REACTIONS (8)
  - ANXIETY [None]
  - CHEST DISCOMFORT [None]
  - CHEST PAIN [None]
  - CORONARY ARTERY DISEASE [None]
  - COUGH [None]
  - INSOMNIA [None]
  - MYOCARDIAL INFARCTION [None]
  - TREATMENT NONCOMPLIANCE [None]
